FAERS Safety Report 9316606 (Version 1)
Quarter: 2013Q2

REPORT INFORMATION
  Report Type: Spontaneous
  Country: US (occurrence: None)
  Receive Date: 20130528
  Receipt Date: 20130528
  Transmission Date: 20140414
  Serious: Yes (Other)
  Sender: FDA-Public Use
  Company Number: None

PATIENT
  Age: 38 Year
  Sex: Female
  Weight: 58.51 kg

DRUGS (6)
  1. CYMBALTA [Suspect]
     Indication: MAJOR DEPRESSION
     Dosage: 1 CAPSULE
     Route: 048
     Dates: start: 20090401, end: 20130501
  2. CYMBALTA [Suspect]
     Indication: FIBROMYALGIA
     Dosage: 1 CAPSULE
     Route: 048
     Dates: start: 20090401, end: 20130501
  3. CYMBALTA [Suspect]
     Indication: PAIN
     Dosage: 1 CAPSULE
     Route: 048
     Dates: start: 20090401, end: 20130501
  4. CYMBALTA [Suspect]
     Indication: MAJOR DEPRESSION
     Dosage: 1 CAPSULE
     Route: 048
     Dates: start: 20130501, end: 20130514
  5. CYMBALTA [Suspect]
     Indication: FIBROMYALGIA
     Dosage: 1 CAPSULE
     Route: 048
     Dates: start: 20130501, end: 20130514
  6. CYMBALTA [Suspect]
     Indication: PAIN
     Dosage: 1 CAPSULE
     Route: 048
     Dates: start: 20130501, end: 20130514

REACTIONS (4)
  - Myalgia [None]
  - Muscle twitching [None]
  - Drug withdrawal syndrome [None]
  - Paraesthesia [None]
